FAERS Safety Report 4269426-3 (Version None)
Quarter: 2004Q1

REPORT INFORMATION
  Report Type: 
  Country: None (occurrence: None)
  Receive Date: 20040108
  Receipt Date: 20031114
  Transmission Date: 20041129
  Serious: Yes (Hospitalization)
  Sender: FDA-Public Use
  Company Number: FR-JNJFOC-20031102755

PATIENT
  Age: 74 Year
  Sex: Male

DRUGS (3)
  1. GALANTAMINE (GALANTAMINE) TABLETS [Suspect]
     Dosage: 4 MG, 1 IN 1 DAY, ORAL
     Route: 048
     Dates: start: 20030601, end: 20030724
  2. ZOLPIDEM TARTRATE [Concomitant]
  3. NEULEPTIL (PERICIAZINE) [Concomitant]

REACTIONS (4)
  - HYPERHIDROSIS [None]
  - MALAISE [None]
  - VERTIGO [None]
  - VOMITING [None]
